FAERS Safety Report 5757705-X (Version None)
Quarter: 2008Q2

REPORT INFORMATION
  Report Type: 
  Country: None (occurrence: None)
  Receive Date: 20080529
  Receipt Date: 20080514
  Transmission Date: 20081010
  Serious: Yes (Hospitalization)
  Sender: FDA-Public Use
  Company Number: 2008AL005669

PATIENT
  Age: 74 Year
  Sex: Male

DRUGS (4)
  1. NIFEDIPINE [Suspect]
     Dosage: 60 MG;
  2. EPREX [Concomitant]
  3. EPREX [Concomitant]
  4. ALFACALCIDOL [Concomitant]

REACTIONS (2)
  - ANTI-ERYTHROPOIETIN ANTIBODY POSITIVE [None]
  - APLASIA PURE RED CELL [None]
